FAERS Safety Report 12200271 (Version 1)
Quarter: 2016Q1

REPORT INFORMATION
  Report Type: Other
  Country: GB (occurrence: GB)
  Receive Date: 20160322
  Receipt Date: 20160322
  Transmission Date: 20160526
  Serious: Yes (Hospitalization, Other)
  Sender: FDA-Public Use
  Company Number: GB-MYLANLABS-2016M1011436

PATIENT

DRUGS (5)
  1. CASANTHRANOL [Concomitant]
     Active Substance: CASANTHRANOL
     Indication: CONSTIPATION
     Dosage: 300 MG, QD
     Route: 048
     Dates: start: 20160206
  2. SERTRALINE [Concomitant]
     Active Substance: SERTRALINE HYDROCHLORIDE
     Indication: DEPRESSION
     Dosage: 200 MG, QD
     Route: 048
  3. MIRTAZAPINE. [Suspect]
     Active Substance: MIRTAZAPINE
     Indication: DEPRESSION
     Dosage: 15 MG, QD
     Route: 048
     Dates: start: 20160206
  4. DOCUSATE [Concomitant]
     Active Substance: DOCUSATE
     Indication: CONSTIPATION
     Dosage: 300 MG, QD
     Route: 048
     Dates: start: 20160206
  5. ZAPONEX [Suspect]
     Active Substance: CLOZAPINE
     Dosage: 425 MG, QD
     Route: 048
     Dates: start: 20150422

REACTIONS (5)
  - Mental impairment [Unknown]
  - Urinary tract disorder [Unknown]
  - Malaise [Unknown]
  - Influenza like illness [Unknown]
  - Neutrophil count decreased [Recovered/Resolved]

NARRATIVE: CASE EVENT DATE: 20160223
